FAERS Safety Report 9646532 (Version 2)
Quarter: 2013Q4

REPORT INFORMATION
  Report Type: Spontaneous
  Country: US (occurrence: US)
  Receive Date: 20131025
  Receipt Date: 20131202
  Transmission Date: 20140711
  Serious: Yes (Other)
  Sender: FDA-Public Use
  Company Number: US-GILEAD-2013-0085674

PATIENT
  Age: 46 Year
  Sex: Male
  Weight: 66 kg

DRUGS (6)
  1. COMPLERA [Suspect]
     Indication: PRODUCT USED FOR UNKNOWN INDICATION
     Dosage: UNK
     Route: 065
     Dates: end: 201202
  2. REYATAZ [Concomitant]
     Dosage: UNK
     Dates: start: 201202
  3. EPZICOM [Concomitant]
     Dosage: UNK
     Dates: start: 201202
  4. PRILOSEC                           /00661201/ [Concomitant]
     Dosage: UNK
     Dates: start: 201202
  5. FLEXERIL                           /00428402/ [Concomitant]
     Dosage: UNK
     Dates: start: 201202
  6. MOTRIN [Concomitant]
     Dosage: UNK
     Dates: start: 201202

REACTIONS (3)
  - Nephrolithiasis [Not Recovered/Not Resolved]
  - Hydronephrosis [Not Recovered/Not Resolved]
  - Renal disorder [Unknown]
